FAERS Safety Report 24093144 (Version 2)
Quarter: 2024Q3

REPORT INFORMATION
  Report Type: Spontaneous
  Country: PL (occurrence: PL)
  Receive Date: 20240715
  Receipt Date: 20240718
  Transmission Date: 20241017
  Serious: Yes (Life-Threatening, Other)
  Sender: MYLAN
  Company Number: None

PATIENT
  Age: 63 Year
  Sex: Male
  Weight: 90 kg

DRUGS (2)
  1. ZOLPIDEM [Suspect]
     Active Substance: ZOLPIDEM TARTRATE
     Indication: Product used for unknown indication
     Dosage: 20 DOSAGE FORM, TOTAL (START DATE: 2020/05/02 AT APPROXIMATELY 09:00-10:00)
     Route: 048
     Dates: start: 20200502, end: 20200502
  2. CHLORPROTHIXENE [Suspect]
     Active Substance: CHLORPROTHIXENE
     Indication: Product used for unknown indication
     Dosage: 10 DOSAGE FORM, TOTAL (START DATE: 2020/05/02 AT APPROXIMATELY 09:00-10:00)
     Route: 048
     Dates: start: 20200502, end: 20200502

REACTIONS (3)
  - Toxicity to various agents [Recovering/Resolving]
  - Suicide attempt [Recovering/Resolving]
  - Drug abuse [Unknown]

NARRATIVE: CASE EVENT DATE: 20200502
